FAERS Safety Report 9462752 (Version 3)
Quarter: 2013Q4

REPORT INFORMATION
  Report Type: Spontaneous
  Country: DE (occurrence: None)
  Receive Date: 20130814
  Receipt Date: 20131028
  Transmission Date: 20140711
  Serious: Yes (Hospitalization, Other)
  Sender: FDA-Public Use
  Company Number: 1308-996

PATIENT
  Age: 58 Year
  Sex: Female
  Weight: 72 kg

DRUGS (11)
  1. VEGF TRAP-EYE (INJECTION) (VEGF TRAP) [Suspect]
     Indication: DIABETIC RETINOPATHY
     Route: 031
     Dates: start: 20111128
  2. FLOXAL (OFLOXACIN) [Concomitant]
  3. HUMACAIN (OXYBUPROCAINE) [Concomitant]
  4. BETADINE (POVIDONE-IODINE) [Concomitant]
  5. FLUORESCEIN (FLUORESCEIN) [Concomitant]
  6. MYDRUM (TROPICAMIDE) [Concomitant]
  7. NEOSYNEPHRIN (PHENYLEPHRINE HYDROCHLORIDE) [Concomitant]
  8. LAVESTRA (LOSARTAN POTASSIUM) [Concomitant]
  9. HUMULIN R (INSULIN HUMAN) [Concomitant]
  10. INSULIN (INSULIN) [Concomitant]
  11. MEFORAL (METFORMIN) [Concomitant]

REACTIONS (2)
  - Vitreous haemorrhage [None]
  - Diabetes mellitus [None]
